FAERS Safety Report 9346077 (Version 1)
Quarter: 2013Q2

REPORT INFORMATION
  Report Type: Spontaneous
  Country: ES (occurrence: GB)
  Receive Date: 20130613
  Receipt Date: 20130613
  Transmission Date: 20140414
  Serious: Yes (Other)
  Sender: FDA-Public Use
  Company Number: GB-FRI-1000045211

PATIENT
  Age: 82 Year
  Sex: Male

DRUGS (2)
  1. ACLIDINIUM [Suspect]
     Dosage: 750 MCG
  2. MACROGOL [Concomitant]
     Dosage: 1 SACHET DAILY
     Dates: start: 201108

REACTIONS (1)
  - Transient ischaemic attack [Recovered/Resolved]
